FAERS Safety Report 25040254 (Version 1)
Quarter: 2025Q1

REPORT INFORMATION
  Report Type: Spontaneous
  Country: RO (occurrence: RO)
  Receive Date: 20250305
  Receipt Date: 20250305
  Transmission Date: 20250409
  Serious: Yes (Life-Threatening, Hospitalization)
  Sender: ROCHE
  Company Number: RO-ROCHE-10000221001

PATIENT
  Age: 17 Month
  Sex: Male

DRUGS (1)
  1. EVRYSDI [Suspect]
     Active Substance: RISDIPLAM
     Indication: Spinal muscular atrophy
     Route: 048
     Dates: start: 202401

REACTIONS (4)
  - Chronic respiratory failure [Unknown]
  - Atelectasis [Unknown]
  - Brain oedema [Unknown]
  - Enterocolitis [Unknown]
